FAERS Safety Report 7643790-7 (Version None)
Quarter: 2011Q3

REPORT INFORMATION
  Report Type: 
  Country: None (occurrence: None)
  Receive Date: 20110729
  Receipt Date: 20110715
  Transmission Date: 20111222
  Serious: Yes (Hospitalization, Disabling)
  Sender: FDA-Public Use
  Company Number: CA-SANOFI-AVENTIS-2011SA037849

PATIENT
  Age: 63 Year
  Sex: Female
  Weight: 41.7 kg

DRUGS (12)
  1. LEUCOVORIN CALCIUM [Suspect]
     Indication: CHEMOTHERAPY
     Route: 065
     Dates: start: 20110302, end: 20110304
  2. VITAMIN B1 TAB [Concomitant]
     Route: 042
     Dates: start: 20110306
  3. SYNTHROID [Concomitant]
  4. ASPIRIN [Concomitant]
     Dates: start: 20110306
  5. FLUOROURACIL [Suspect]
     Indication: CHEMOTHERAPY
     Route: 065
     Dates: start: 20110302, end: 20110304
  6. VITAMIN B-12 [Concomitant]
     Dates: start: 20110306
  7. DEXAMETHASONE [Concomitant]
     Dates: start: 20110306
  8. M.V.I. [Concomitant]
  9. OXALIPLATIN [Suspect]
     Indication: CHEMOTHERAPY
     Route: 065
     Dates: start: 20110302, end: 20110304
  10. CALCIUM/MAGNESIUM [Concomitant]
     Dates: start: 20110302, end: 20110303
  11. DALTEPARIN SODIUM [Concomitant]
     Dosage: DOSE:5000 UNIT(S)
     Route: 058
     Dates: start: 20110306
  12. FERROUS SULFATE TAB [Concomitant]

REACTIONS (3)
  - HEMIPARESIS [None]
  - CEREBROVASCULAR ACCIDENT [None]
  - APHASIA [None]
